FAERS Safety Report 4584164-5 (Version None)
Quarter: 2005Q1

REPORT INFORMATION
  Report Type: 
  Country: None (occurrence: None)
  Receive Date: 20050125
  Receipt Date: 20041101
  Transmission Date: 20050727
  Serious: No
  Sender: FDA-Public Use
  Company Number: USA041182896

PATIENT
  Age: 87 Year
  Sex: Female

DRUGS (5)
  1. FORTEO [Suspect]
     Indication: OSTEOPOROSIS
     Dates: start: 20030101
  2. SYNTHROID [Concomitant]
  3. NEXIUM [Concomitant]
  4. VITAMINS [Concomitant]
  5. CALCIUM GLUCONATE [Concomitant]

REACTIONS (6)
  - BLOOD CALCIUM INCREASED [None]
  - DIZZINESS [None]
  - FEAR [None]
  - HEADACHE [None]
  - MACULAR DEGENERATION [None]
  - NAUSEA [None]
